FAERS Safety Report 26140274 (Version 1)
Quarter: 2025Q4

REPORT INFORMATION
  Report Type: Spontaneous
  Country: MX (occurrence: MX)
  Receive Date: 20251210
  Receipt Date: 20251210
  Transmission Date: 20260118
  Serious: Yes (Hospitalization, Other)
  Sender: NOVARTIS
  Company Number: MX-002147023-NVSC2024MX214330

PATIENT
  Sex: Male

DRUGS (1)
  1. GLIVEC [Suspect]
     Active Substance: IMATINIB MESYLATE
     Indication: Chronic myeloid leukaemia
     Dosage: 4 X 100MG (400MG)
     Route: 065

REACTIONS (4)
  - Pneumonia [Unknown]
  - Haemoptysis [Unknown]
  - Bone neoplasm [Unknown]
  - Bronchial obstruction [Unknown]
